FAERS Safety Report 5292981-1 (Version None)
Quarter: 2007Q2

REPORT INFORMATION
  Report Type: 
  Country: None (occurrence: None)
  Receive Date: 20070404
  Receipt Date: 20070326
  Transmission Date: 20071010
  Serious: Yes (Death)
  Sender: FDA-Public Use
  Company Number: 2007BI006623

PATIENT
  Age: 38 Year
  Sex: Female

DRUGS (1)
  1. NATALIZUMAB [Suspect]
     Indication: MULTIPLE SCLEROSIS
     Dosage: 300 MG; QM; IV
     Route: 042
     Dates: start: 20061023, end: 20070312

REACTIONS (4)
  - ACCIDENTAL DEATH [None]
  - DROWNING [None]
  - FALL [None]
  - HEAD INJURY [None]
